FAERS Safety Report 6025935-8 (Version None)
Quarter: 2008Q4

REPORT INFORMATION
  Report Type: 
  Country: None (occurrence: None)
  Receive Date: 20081230
  Receipt Date: 20081215
  Transmission Date: 20090506
  Serious: Yes (Death, Hospitalization)
  Sender: FDA-Public Use
  Company Number: KV200801156

PATIENT
  Age: 62 Year
  Sex: Male

DRUGS (2)
  1. MORPHINE SULFATE [Suspect]
     Indication: PAIN
     Dosage: 30 MG,ONE TABLET EVERY THREE HOURS, ORAL
     Route: 048
     Dates: start: 20070101, end: 20071101
  2. LORTAB [Concomitant]

REACTIONS (5)
  - CONVULSION [None]
  - FALL [None]
  - MALIGNANT NEOPLASM PROGRESSION [None]
  - PRODUCT QUALITY ISSUE [None]
  - PROSTATE CANCER [None]
